FAERS Safety Report 4779960-5 (Version None)
Quarter: 2005Q3

REPORT INFORMATION
  Report Type: 
  Country: None (occurrence: None)
  Receive Date: 20050927
  Receipt Date: 20050831
  Transmission Date: 20060218
  Serious: Yes (Hospitalization)
  Sender: FDA-Public Use
  Company Number: JP-JPN-A20052050

PATIENT
  Age: 36 Year
  Sex: Male
  Weight: 87 kg

DRUGS (7)
  1. EPIVIR [Suspect]
     Indication: HIV INFECTION
     Dosage: 150MG TWICE PER DAY
     Route: 048
     Dates: start: 20031001, end: 20050504
  2. ZERIT [Suspect]
     Indication: HIV INFECTION
     Dosage: 40MG TWICE PER DAY
     Route: 048
     Dates: start: 20031001, end: 20050504
  3. PAXIL [Concomitant]
     Route: 048
  4. SILECE [Concomitant]
     Route: 065
  5. LORAZEPAM [Concomitant]
     Dosage: .5MG PER DAY
     Route: 048
  6. LEVOTOMIN [Concomitant]
     Dosage: 8MG PER DAY
     Route: 065
  7. MYSLEE [Concomitant]
     Route: 048

REACTIONS (6)
  - ABDOMINAL PAIN UPPER [None]
  - ABDOMINAL TENDERNESS [None]
  - BLOOD AMYLASE INCREASED [None]
  - FLUID RETENTION [None]
  - HYPERTRIGLYCERIDAEMIA [None]
  - PANCREATITIS ACUTE [None]
